FAERS Safety Report 9437461 (Version 1)
Quarter: 2013Q3

REPORT INFORMATION
  Report Type: Spontaneous
  Country: US (occurrence: US)
  Receive Date: 20130802
  Receipt Date: 20130802
  Transmission Date: 20140515
  Serious: No
  Sender: FDA-Public Use
  Company Number: US-BAXTER-2013BAX010838

PATIENT
  Sex: Female

DRUGS (1)
  1. BUMINATE [Suspect]
     Indication: OCCUPATIONAL EXPOSURE TO PRODUCT

REACTIONS (2)
  - Accidental exposure to product [Unknown]
  - No adverse event [Recovered/Resolved]
